FAERS Safety Report 13498812 (Version 1)
Quarter: 2017Q2

REPORT INFORMATION
  Report Type: Spontaneous
  Country: US (occurrence: US)
  Receive Date: 20170428
  Receipt Date: 20170428
  Transmission Date: 20170830
  Serious: Yes (Other)
  Sender: FDA-Public Use
  Company Number: None

PATIENT
  Age: 57 Year
  Sex: Male
  Weight: 94.5 kg

DRUGS (12)
  1. OMEPROZOLE [Concomitant]
     Active Substance: OMEPRAZOLE
  2. TESTOSTERONE. [Concomitant]
     Active Substance: TESTOSTERONE
  3. NORCO [Concomitant]
     Active Substance: ACETAMINOPHEN\HYDROCODONE BITARTRATE
  4. BABY ASPIRIN [Concomitant]
     Active Substance: ASPIRIN
  5. MAGNESIEM [Concomitant]
  6. BYSTOLLIC [Concomitant]
  7. VITAMIN B COMPLEX [Concomitant]
     Active Substance: CYANOCOBALAMIN\DEXPANTHENOL\NIACINAMIDE\PYRIDOXINE HYDROCHLORIDE\RIBOFLAVIN 5^-PHOSPHATE SODIUM\THIAMINE HYDROCHLORIDE\VITAMIN B COMPLEX
  8. XIIDRA [Suspect]
     Active Substance: LIFITEGRAST
     Indication: DRY EYE
     Dosage: ?          QUANTITY:2 DROP(S);?
     Route: 047
     Dates: start: 20170318, end: 20170403
  9. BENICAR [Concomitant]
     Active Substance: OLMESARTAN MEDOXOMIL
  10. LORAZONE [Concomitant]
  11. LIVALO [Concomitant]
     Active Substance: PITAVASTATIN CALCIUM
  12. ULTRAM [Concomitant]
     Active Substance: TRAMADOL HYDROCHLORIDE

REACTIONS (3)
  - Erythema [None]
  - Chemical burn [None]
  - Skin exfoliation [None]

NARRATIVE: CASE EVENT DATE: 20170331
